FAERS Safety Report 17345638 (Version 1)
Quarter: 2020Q1

REPORT INFORMATION
  Report Type: Spontaneous
  Country: ES (occurrence: ES)
  Receive Date: 20200129
  Receipt Date: 20200129
  Transmission Date: 20200409
  Serious: Yes (Other)
  Sender: FDA-Public Use
  Company Number: ES-ROCHE-2504298

PATIENT
  Sex: Female
  Weight: 84 kg

DRUGS (1)
  1. HERCEPTIN [Suspect]
     Active Substance: TRASTUZUMAB
     Indication: NEOPLASM MALIGNANT
     Route: 065

REACTIONS (4)
  - Pulmonary mass [Unknown]
  - Pleural effusion [Unknown]
  - Drug intolerance [Unknown]
  - Diarrhoea [Unknown]
